FAERS Safety Report 17499420 (Version 1)
Quarter: 2020Q1

REPORT INFORMATION
  Report Type: Spontaneous
  Country: HR (occurrence: HR)
  Receive Date: 20200304
  Receipt Date: 20200304
  Transmission Date: 20200409
  Serious: Yes (Other)
  Sender: FDA-Public Use
  Company Number: HR-US-PROVELL PHARMACEUTICALS LLC-E2B_90075339

PATIENT
  Age: 31 Year
  Sex: Male
  Weight: 85 kg

DRUGS (1)
  1. EUTHYROX [Suspect]
     Active Substance: LEVOTHYROXINE SODIUM
     Indication: AUTOIMMUNE THYROIDITIS
     Route: 048
     Dates: start: 20191228

REACTIONS (9)
  - Fatigue [Not Recovered/Not Resolved]
  - Hypothyroidism [Unknown]
  - Malaise [Unknown]
  - Hypertension [Not Recovered/Not Resolved]
  - Tinnitus [Unknown]
  - Dizziness [Not Recovered/Not Resolved]
  - Arrhythmia [Not Recovered/Not Resolved]
  - Angina pectoris [Unknown]
  - Feeling cold [Not Recovered/Not Resolved]

NARRATIVE: CASE EVENT DATE: 202001
